FAERS Safety Report 25215591 (Version 1)
Quarter: 2025Q2

REPORT INFORMATION
  Report Type: Spontaneous
  Country: US (occurrence: US)
  Receive Date: 20250418
  Receipt Date: 20250418
  Transmission Date: 20250716
  Serious: No
  Sender: Phathom Pharmaceuticals
  Company Number: US-PHATHOM PHARMACEUTICALS INC.-2025PHT00224

PATIENT
  Age: 66 Year
  Sex: Female

DRUGS (10)
  1. VOQUEZNA [Suspect]
     Active Substance: VONOPRAZAN FUMARATE
     Indication: Oesophagitis
     Dosage: 20 MG, 1X/DAY
     Route: 048
     Dates: start: 20241205, end: 20250129
  2. VITAMIN K [Concomitant]
     Active Substance: PHYTONADIONE
  3. AMOXICILLIN [Concomitant]
     Active Substance: AMOXICILLIN
  4. MEDROXYPROGESTERONE [Concomitant]
     Active Substance: MEDROXYPROGESTERONE
  5. ESTRADIOL [Concomitant]
     Active Substance: ESTRADIOL
  6. IPRATROPIUM BROMIDE [Concomitant]
     Active Substance: IPRATROPIUM BROMIDE
  7. VENLAFAXINE [Concomitant]
     Active Substance: VENLAFAXINE HYDROCHLORIDE
  8. WELLBUTRIN XL [Concomitant]
     Active Substance: BUPROPION HYDROCHLORIDE
  9. ROSUVASTATIN [Concomitant]
     Active Substance: ROSUVASTATIN
  10. ZOLPIDEM [Concomitant]
     Active Substance: ZOLPIDEM TARTRATE

REACTIONS (2)
  - Vulvitis [Recovering/Resolving]
  - Postmenopausal haemorrhage [Recovering/Resolving]
